FAERS Safety Report 5130001-X (Version None)
Quarter: 2006Q4

REPORT INFORMATION
  Report Type: 
  Country: None (occurrence: None)
  Receive Date: 20061013
  Receipt Date: 20061002
  Transmission Date: 20070319
  Serious: Yes (Hospitalization)
  Sender: FDA-Public Use
  Company Number: 2006119841

PATIENT
  Age: 47 Year
  Sex: Female

DRUGS (2)
  1. ALPRAZOLAM [Suspect]
     Indication: INSOMNIA
     Dosage: 0.5 MG (0.5 MG, AS NECESSARY) ORAL
     Route: 048
     Dates: start: 20000101
  2. OMEPRAZOLE [Concomitant]

REACTIONS (1)
  - CHOLECYSTECTOMY [None]
